FAERS Safety Report 9254533 (Version 2)
Quarter: 2013Q3

REPORT INFORMATION
  Report Type: Report from Study
  Country: FR (occurrence: FR)
  Receive Date: 20130425
  Receipt Date: 20130717
  Transmission Date: 20140515
  Serious: Yes (Other)
  Sender: FDA-Public Use
  Company Number: FR-AMGEN-FRACT2013028826

PATIENT
  Age: 54 Year
  Sex: Female

DRUGS (7)
  1. ETANERCEPT [Suspect]
     Indication: RHEUMATOID ARTHRITIS
     Dosage: 25 MG, 2 TIMES/WK
     Route: 065
     Dates: start: 200601, end: 200603
  2. ETANERCEPT [Suspect]
     Dosage: 25 MG, 2 TIMES/WK
     Route: 065
     Dates: start: 200604, end: 200704
  3. ETANERCEPT [Suspect]
     Dosage: 50 MG, WEEKLY
     Route: 065
     Dates: start: 200704, end: 201102
  4. ETANERCEPT [Suspect]
     Dosage: 50 MG, WEEKLY
     Route: 065
     Dates: start: 201103, end: 201104
  5. LEFLUNOMIDE [Concomitant]
     Dosage: 20 MG DAILY
     Dates: start: 200509, end: 200710
  6. LEFLUNOMIDE [Concomitant]
     Dosage: 10 MG, QD
     Dates: start: 200710, end: 200904
  7. CORTISONE [Concomitant]
     Dosage: UNK

REACTIONS (3)
  - Tonsillitis [Recovered/Resolved]
  - Urinary tract infection [Recovered/Resolved]
  - Bacterial pyelonephritis [Recovered/Resolved]
